FAERS Safety Report 8315096-4 (Version None)
Quarter: 2012Q1

REPORT INFORMATION
  Report Type: 
  Country: None (occurrence: None)
  Receive Date: 20120315
  Receipt Date: 20110428
  Transmission Date: 20120608
  Serious: Yes (Other)
  Sender: FDA-Public Use
  Company Number: PHHY2011US36754

PATIENT
  Age: 60 Year
  Sex: Female

DRUGS (6)
  1. GILENYA [Suspect]
     Indication: MULTIPLE SCLEROSIS
     Dosage: 0.5 MG, DAILY, ORAL
     Route: 048
     Dates: start: 20110127, end: 20110407
  2. TIZANIDINE HCL [Concomitant]
  3. CALCITROL (CALCIUM CARBONATE, ERGOCALCIFEROL, RETINOL) [Concomitant]
  4. LEXAPRO [Concomitant]
  5. KLOR-CON [Concomitant]
  6. DILTIAZEM [Concomitant]

REACTIONS (1)
  - HERPES ZOSTER [None]
